FAERS Safety Report 14170094 (Version 2)
Quarter: 2017Q4

REPORT INFORMATION
  Report Type: Spontaneous
  Country: US (occurrence: US)
  Receive Date: 20171108
  Receipt Date: 20171228
  Transmission Date: 20180321
  Serious: Yes (Death, Hospitalization, Other)
  Sender: FDA-Public Use
  Company Number: US-PFIZER INC-2017481421

PATIENT
  Age: 89 Year
  Sex: Female
  Weight: 59.86 kg

DRUGS (1)
  1. XALKORI [Suspect]
     Active Substance: CRIZOTINIB
     Dosage: UNK

REACTIONS (6)
  - Death [Fatal]
  - Thrombosis [Unknown]
  - Decreased appetite [Unknown]
  - Dyspnoea [Unknown]
  - Pneumonia [Unknown]
  - Neoplasm progression [Unknown]
